FAERS Safety Report 4988580-9 (Version None)
Quarter: 2006Q2

REPORT INFORMATION
  Report Type: 
  Country: None (occurrence: None)
  Receive Date: 20060426
  Receipt Date: 20060410
  Transmission Date: 20061013
  Serious: Yes (Death, Other)
  Sender: FDA-Public Use
  Company Number: WAES 0604KOR00012

PATIENT
  Age: 58 Year
  Sex: Male

DRUGS (6)
  1. CANCIDAS [Suspect]
     Indication: BRONCHOPULMONARY ASPERGILLOSIS
     Dosage: 70 MG/DAILY  IV   ; 50 MG/DAILY IV
     Route: 042
     Dates: start: 20060311, end: 20060311
  2. CANCIDAS [Suspect]
     Indication: BRONCHOPULMONARY ASPERGILLOSIS
     Dosage: 70 MG/DAILY  IV   ; 50 MG/DAILY IV
     Route: 042
     Dates: start: 20060312, end: 20060324
  3. IMIPENEM [Concomitant]
  4. ITRACONAZOLE [Concomitant]
  5. LINEZOLID [Concomitant]
  6. VANCOMYCIN [Concomitant]

REACTIONS (8)
  - ALANINE AMINOTRANSFERASE INCREASED [None]
  - ASPARTATE AMINOTRANSFERASE INCREASED [None]
  - BLOOD BILIRUBIN INCREASED [None]
  - BLOOD CREATININE INCREASED [None]
  - HYPERNATRAEMIA [None]
  - LIVER FUNCTION TEST ABNORMAL [None]
  - MULTI-ORGAN FAILURE [None]
  - SEPSIS [None]
